FAERS Safety Report 4589167-2 (Version None)
Quarter: 2005Q1

REPORT INFORMATION
  Report Type: 
  Country: None (occurrence: None)
  Receive Date: 20050215
  Receipt Date: 20050215
  Transmission Date: 20050727
  Serious: Yes (Hospitalization)
  Sender: FDA-Public Use
  Company Number: None

PATIENT
  Sex: Female
  Weight: 100 kg

DRUGS (1)
  1. BACTRIM DS [Suspect]
     Indication: BACTERIAL INFECTION
     Dosage: 1 TAB  BID ORAL
     Route: 048
     Dates: start: 20050131, end: 20050206

REACTIONS (2)
  - FEELING ABNORMAL [None]
  - RASH [None]
